FAERS Safety Report 6248296-8 (Version None)
Quarter: 2009Q2

REPORT INFORMATION
  Report Type: 
  Country: None (occurrence: None)
  Receive Date: 20090629
  Receipt Date: 20090617
  Transmission Date: 20091009
  Serious: Yes (Hospitalization)
  Sender: FDA-Public Use
  Company Number: PHHY2008JP22876

PATIENT
  Sex: Female
  Weight: 39 kg

DRUGS (1)
  1. LOCHOL [Suspect]
     Indication: HYPERCHOLESTEROLAEMIA
     Dosage: 10 MG/DAY
     Route: 048
     Dates: start: 20061101, end: 20080701

REACTIONS (9)
  - ANTINUCLEAR ANTIBODY POSITIVE [None]
  - AUTOIMMUNE HEPATITIS [None]
  - BIOPSY LIVER [None]
  - BLOOD CHOLESTEROL DECREASED [None]
  - BLOOD IMMUNOGLOBULIN G INCREASED [None]
  - DYSGEUSIA [None]
  - HEPATIC FUNCTION ABNORMAL [None]
  - LIVER FUNCTION TEST ABNORMAL [None]
  - MALAISE [None]
